FAERS Safety Report 8190392-2 (Version None)
Quarter: 2012Q1

REPORT INFORMATION
  Report Type: 
  Country: None (occurrence: None)
  Receive Date: 20120305
  Receipt Date: 20120224
  Transmission Date: 20120608
  Serious: Yes (Hospitalization)
  Sender: FDA-Public Use
  Company Number: 20120098

PATIENT
  Age: 27 Year
  Sex: Female

DRUGS (1)
  1. VENOFER [Suspect]
     Indication: IRON DEFICIENCY ANAEMIA
     Dosage: UNKNOWN INTRAVENOUS
     Route: 042
     Dates: start: 20120120, end: 20120120

REACTIONS (2)
  - CHILLS [None]
  - PYREXIA [None]
